FAERS Safety Report 24382570 (Version 1)
Quarter: 2024Q4

REPORT INFORMATION
  Report Type: Spontaneous
  Country: CN (occurrence: CN)
  Receive Date: 20241001
  Receipt Date: 20241001
  Transmission Date: 20250115
  Serious: Yes (Hospitalization)
  Sender: ACCORD
  Company Number: None

PATIENT
  Age: 53 Year
  Sex: Male
  Weight: 46 kg

DRUGS (7)
  1. TRASTUZUMAB [Suspect]
     Active Substance: TRASTUZUMAB
     Indication: Gastric cancer
     Dosage: STRENGTH: 150 MILLIGRAM?300 MILLIGRAM, QD, INJECTION
     Route: 042
     Dates: start: 20240802, end: 20240802
  2. GIMERACIL\OTERACIL\TEGAFUR [Suspect]
     Active Substance: GIMERACIL\OTERACIL POTASSIUM\TEGAFUR
     Indication: Gastric cancer
     Dosage: CAPSULE, 50 MILLIGRAM, QD
     Route: 048
     Dates: start: 20240802, end: 20240815
  3. SINTILIMAB [Suspect]
     Active Substance: SINTILIMAB
     Indication: Gastric cancer
     Dosage: 200 MILLIGRAM, QD, INJECTION
     Route: 042
     Dates: start: 20240802, end: 20240802
  4. OXALIPLATIN [Suspect]
     Active Substance: OXALIPLATIN
     Indication: Gastric cancer
     Dosage: INJECTION, 170 MILLIGRAM, QD
     Route: 042
     Dates: start: 20240803, end: 20240803
  5. OXALIPLATIN [Suspect]
     Active Substance: OXALIPLATIN
     Indication: Gastric cancer
     Dosage: INJECTION, 170 MILLIGRAM, QD
     Route: 042
     Dates: start: 20240825, end: 20240825
  6. GIMERACIL\OTERACIL\TEGAFUR [Suspect]
     Active Substance: GIMERACIL\OTERACIL POTASSIUM\TEGAFUR
     Indication: Gastric cancer
     Dosage: CAPSULE, 50 MILLIGRAM, QD
     Route: 048
     Dates: start: 20240825, end: 20240907
  7. SINTILIMAB [Suspect]
     Active Substance: SINTILIMAB
     Indication: Gastric cancer
     Dosage: 200 MILLIGRAM, QD, INJECTION
     Route: 042
     Dates: start: 20240825, end: 20240825

REACTIONS (1)
  - Myelosuppression [Recovering/Resolving]

NARRATIVE: CASE EVENT DATE: 20240825
